FAERS Safety Report 24019940 (Version 1)
Quarter: 2024Q2

REPORT INFORMATION
  Report Type: Spontaneous
  Country: US (occurrence: US)
  Receive Date: 20240627
  Receipt Date: 20240627
  Transmission Date: 20240716
  Serious: No
  Sender: FDA-Public Use
  Company Number: US-SANDOZ-SDZ2024US045119

PATIENT
  Age: 12 Year
  Sex: Male

DRUGS (1)
  1. POLYMYXIN B SULFATE\TRIMETHOPRIM [Suspect]
     Active Substance: POLYMYXIN B SULFATE\TRIMETHOPRIM
     Indication: Conjunctivitis
     Dosage: THREE DOSES
     Route: 047

REACTIONS (8)
  - Corneal abrasion [Unknown]
  - Crying [Unknown]
  - Screaming [Unknown]
  - Instillation site pain [Not Recovered/Not Resolved]
  - Vision blurred [Unknown]
  - Suspected product contamination [Unknown]
  - Product formulation issue [Unknown]
  - Product contamination [Unknown]
